FAERS Safety Report 5085729-7 (Version None)
Quarter: 2006Q3

REPORT INFORMATION
  Report Type: 
  Country: None (occurrence: None)
  Receive Date: 20060822
  Receipt Date: 20060602
  Transmission Date: 20061208
  Serious: Yes (Hospitalization)
  Sender: FDA-Public Use
  Company Number: DK-NOVOPROD-255077

PATIENT
  Age: 58 Year
  Sex: Female
  Weight: 68 kg

DRUGS (16)
  1. NOVORAPID FLEXPEN [Suspect]
     Indication: INSULIN-REQUIRING TYPE II DIABETES MELLITUS
     Dosage: 40 U, QD
     Route: 058
     Dates: start: 20030701, end: 20040819
  2. NOVORAPID FLEXPEN [Suspect]
     Dosage: 40 U, QD
     Route: 058
     Dates: start: 20040901, end: 20040909
  3. NOVORAPID FLEXPEN [Suspect]
     Dosage: 40 U, QD
     Route: 058
     Dates: start: 20040914
  4. BLINDED [Concomitant]
     Indication: INSULIN-REQUIRING TYPE II DIABETES MELLITUS
     Dosage: 1 TAB, BID
     Route: 048
     Dates: start: 20030701
  5. BLINDED [Concomitant]
     Dosage: 2 TAB, BID
     Route: 048
     Dates: start: 20030701
  6. CARDIL [Concomitant]
     Indication: ANGINA PECTORIS
     Dosage: 120 MG, QD
     Dates: start: 19930101
  7. ENALAPRIL MALEATE [Concomitant]
     Indication: HYPERTENSION
     Dosage: 10 MG, QD
     Dates: start: 19990101
  8. FURIX [Concomitant]
     Indication: OEDEMA PERIPHERAL
     Dosage: 40 MG, QD
     Dates: start: 19930101, end: 20040801
  9. FURIX [Concomitant]
     Dosage: 80 MG, QD
     Dates: start: 20040801, end: 20050501
  10. MAGNYL                             /00002701/ [Concomitant]
     Indication: THROMBOSIS PROPHYLAXIS
     Dosage: 75 MG, QD
     Dates: start: 19930101
  11. LOPID [Concomitant]
     Indication: HYPERCHOLESTEROLAEMIA
     Dosage: 600 MG, QD
     Dates: start: 19930101, end: 20040623
  12. NOBLIGAN [Concomitant]
     Indication: ARTHRALGIA
     Dosage: 150 MG, QD
     Dates: start: 19980101
  13. ACETAMINOPHEN [Concomitant]
     Indication: ARTHRALGIA
     Dosage: 1000 MG, QD
     Dates: start: 19980101
  14. SEREPAX [Concomitant]
     Indication: NERVOUSNESS
     Dosage: 15 MG, QD
     Dates: start: 19930101
  15. TRADOLAN [Concomitant]
     Indication: PAIN IN EXTREMITY
     Dosage: 150 MG, QD
     Dates: start: 20031107, end: 20051117
  16. SIMVASTATIN [Concomitant]
     Indication: HYPERCHOLESTEROLAEMIA
     Dosage: 20 MG, QD
     Dates: start: 20040624, end: 20050526

REACTIONS (1)
  - ANGINA PECTORIS [None]
